FAERS Safety Report 19203368 (Version 2)
Quarter: 2021Q4

REPORT INFORMATION
  Report Type: Report from Study
  Country: AU (occurrence: AU)
  Receive Date: 20210430
  Receipt Date: 20211029
  Transmission Date: 20220303
  Serious: Yes (Other)
  Sender: FDA-Public Use
  Company Number: AU-SA-2020SA325622

PATIENT

DRUGS (14)
  1. CEMIPLIMAB [Suspect]
     Active Substance: CEMIPLIMAB
     Indication: Bladder cancer stage III
     Dosage: 350 MG, Q3W
     Route: 042
     Dates: start: 20200702, end: 20200702
  2. CEMIPLIMAB [Suspect]
     Active Substance: CEMIPLIMAB
     Dosage: 350 MG, Q3W
     Route: 042
     Dates: start: 20201015, end: 20201015
  3. SAR-439459 [Suspect]
     Active Substance: SAR-439459
     Indication: Bladder cancer stage III
     Dosage: 22.5 MG/KG, Q3W
     Route: 042
     Dates: start: 20201015, end: 20201015
  4. SAR-439459 [Suspect]
     Active Substance: SAR-439459
     Indication: Bladder cancer stage III
     Dosage: UNK UNK, Q3W
     Route: 042
     Dates: start: 20200702, end: 20200702
  5. TELMISARTAN [Concomitant]
     Active Substance: TELMISARTAN
     Indication: Product used for unknown indication
     Dosage: TOTAL DAILY DOSE: 40 MG
     Route: 048
     Dates: start: 2005, end: 20201101
  6. AMLODIPINE [Concomitant]
     Active Substance: AMLODIPINE BESYLATE
     Indication: Product used for unknown indication
     Dosage: TOTAL DAILY DOSE: 5 MG
     Route: 048
     Dates: start: 2005, end: 20201101
  7. PANADOL [Concomitant]
     Active Substance: ACETAMINOPHEN
     Indication: Product used for unknown indication
     Dosage: TOTAL DAILY DOSE: 2660 MG
     Route: 048
     Dates: start: 20200626, end: 20201130
  8. DOCUSATE SODIUM\SENNOSIDES A AND B [Concomitant]
     Active Substance: DOCUSATE SODIUM\SENNOSIDES A AND B
     Indication: Product used for unknown indication
     Dosage: TOTAL DAILY DOSE: 4 TABLET
     Route: 048
     Dates: start: 201909
  9. METAMUCIL [Concomitant]
     Active Substance: PLANTAGO SEED
     Indication: Product used for unknown indication
     Dosage: TOTAL DAILY DOSE: 1 TBSP
     Route: 048
     Dates: start: 20200630
  10. MOVICOL [Concomitant]
     Active Substance: POLYETHYLENE GLYCOL 3350\POTASSIUM CHLORIDE\SODIUM BICARBONATE\SODIUM CHLORIDE
     Indication: Product used for unknown indication
     Dosage: TOTAL DAILY DOSE: 2 SACHET
     Route: 048
     Dates: start: 20200709
  11. BETAMETHASONE [Concomitant]
     Active Substance: BETAMETHASONE
     Indication: Product used for unknown indication
     Dosage: TOTAL DAILY DOSE: 2 APPLICATION UNIT
     Route: 061
     Dates: start: 20200827
  12. LORATADINE [Concomitant]
     Active Substance: LORATADINE
     Indication: Product used for unknown indication
     Dosage: TOTAL DAILY DOSE: 10 MG
     Route: 048
     Dates: start: 20200923, end: 20201011
  13. LORATADINE [Concomitant]
     Active Substance: LORATADINE
     Dosage: TOTAL DAILY DOSE: 20 MG
     Route: 048
     Dates: start: 20201012, end: 20201102
  14. TACROLIMUS [Concomitant]
     Active Substance: TACROLIMUS
     Indication: Product used for unknown indication
     Dosage: TOTAL DAILY DOSE: 2 APPLICATION UNIT
     Route: 061
     Dates: start: 20201005, end: 20201125

REACTIONS (1)
  - Squamous cell carcinoma of skin [Recovered/Resolved]

NARRATIVE: CASE EVENT DATE: 20201015
